FAERS Safety Report 19327550 (Version 1)
Quarter: 2021Q2

REPORT INFORMATION
  Report Type: Spontaneous
  Country: FR (occurrence: FR)
  Receive Date: 20210528
  Receipt Date: 20210528
  Transmission Date: 20210717
  Serious: Yes (Other)
  Sender: FDA-Public Use
  Company Number: FR-MYLANLABS-2020M1092546

PATIENT
  Age: 72 Year
  Sex: Male
  Weight: 67.5 kg

DRUGS (3)
  1. FLUCONAZOLE. [Suspect]
     Active Substance: FLUCONAZOLE
     Indication: DEVICE RELATED INFECTION
     Dosage: 400 MILLIGRAM, QD
     Route: 042
     Dates: start: 20200904, end: 20200930
  2. POSACONAZOLE [Suspect]
     Active Substance: POSACONAZOLE
     Indication: DEVICE RELATED INFECTION
     Dosage: 300 MILLIGRAM, QD
     Route: 048
     Dates: start: 20201112, end: 20210305
  3. VANCOMYCIN [Suspect]
     Active Substance: VANCOMYCIN
     Indication: DEVICE RELATED INFECTION
     Dosage: 30 MILLIGRAM/KILOGRAM, QD
     Route: 042
     Dates: start: 20200904, end: 20201004

REACTIONS (4)
  - Hypokalaemia [Recovering/Resolving]
  - Eosinophilia [Recovered/Resolved]
  - Gynaecomastia [Not Recovered/Not Resolved]
  - Hypertension [Not Recovered/Not Resolved]

NARRATIVE: CASE EVENT DATE: 20200911
